FAERS Safety Report 4718667-7 (Version None)
Quarter: 2005Q3

REPORT INFORMATION
  Report Type: 
  Country: None (occurrence: None)
  Receive Date: 20050719
  Receipt Date: 20050706
  Transmission Date: 20060218
  Serious: Yes (Hospitalization)
  Sender: FDA-Public Use
  Company Number: 2005097828

PATIENT
  Age: 37 Year
  Sex: Female
  Weight: 70.3075 kg

DRUGS (3)
  1. BEXTRA [Suspect]
     Indication: RHEUMATOID ARTHRITIS
     Dosage: 10 MG (10 MG, 1 IN 1 D), ORAL
     Route: 048
     Dates: start: 20010101
  2. CAFFEINE (CAFFEINE) [Suspect]
     Indication: ILL-DEFINED DISORDER
  3. ZANTAC [Concomitant]

REACTIONS (4)
  - BLOOD PRESSURE INCREASED [None]
  - DISEASE PROGRESSION [None]
  - PALPITATIONS [None]
  - RHEUMATOID ARTHRITIS [None]
